FAERS Safety Report 24430723 (Version 4)
Quarter: 2024Q4

REPORT INFORMATION
  Report Type: Spontaneous
  Country: US (occurrence: US)
  Receive Date: 20241013
  Receipt Date: 20241114
  Transmission Date: 20250114
  Serious: Yes (Other)
  Sender: ALEXION PHARMACEUTICALS
  Company Number: US-ASTRAZENECA-202410USA005773US

PATIENT

DRUGS (8)
  1. ULTOMIRIS [Suspect]
     Active Substance: RAVULIZUMAB-CWVZ
     Indication: Paroxysmal nocturnal haemoglobinuria
     Dosage: UNK
     Route: 065
  2. ULTOMIRIS [Suspect]
     Active Substance: RAVULIZUMAB-CWVZ
     Dosage: UNK
  3. ULTOMIRIS [Suspect]
     Active Substance: RAVULIZUMAB-CWVZ
     Dosage: UNK
     Route: 065
  4. ULTOMIRIS [Suspect]
     Active Substance: RAVULIZUMAB-CWVZ
     Dosage: UNK
  5. VOYDEYA [Suspect]
     Active Substance: DANICOPAN
     Indication: Paroxysmal nocturnal haemoglobinuria
     Dosage: 200 MILLIGRAM
     Route: 065
  6. VOYDEYA [Suspect]
     Active Substance: DANICOPAN
     Dosage: 200 MILLIGRAM
  7. VOYDEYA [Suspect]
     Active Substance: DANICOPAN
     Dosage: 200 MILLIGRAM
     Route: 065
  8. VOYDEYA [Suspect]
     Active Substance: DANICOPAN
     Dosage: 200 MILLIGRAM

REACTIONS (2)
  - Haemolysis [Not Recovered/Not Resolved]
  - Drug ineffective [Unknown]
